FAERS Safety Report 4446900-8 (Version None)
Quarter: 2004Q3

REPORT INFORMATION
  Report Type: 
  Country: None (occurrence: None)
  Receive Date: 20040908
  Receipt Date: 20040826
  Transmission Date: 20050211
  Serious: Yes (Other)
  Sender: FDA-Public Use
  Company Number: 208742

PATIENT
  Age: 70 Year
  Sex: Male

DRUGS (4)
  1. MABTHERA (RITUXIMAB) CONC FOR SOLUTION FOR INFUSION [Suspect]
     Indication: WALDENSTROM'S MACROGLOBULINAEMIA
     Dosage: INTRAVENOUS
     Route: 042
  2. PLASMA EXCHANGE (PLASMA PHERESIS) [Concomitant]
  3. CHLORAMINOPHENE (CHLORAMBUCIL) [Concomitant]
  4. HYPOGLYCEMIC SULFONAMIDES (SULFONAMIDE NOS) [Concomitant]

REACTIONS (3)
  - AUTOIMMUNE THYROIDITIS [None]
  - HYPERTHYROIDISM [None]
  - HYPOTHYROIDISM [None]
